FAERS Safety Report 4874728-3 (Version None)
Quarter: 2006Q1

REPORT INFORMATION
  Report Type: 
  Country: None (occurrence: None)
  Receive Date: 20060106
  Receipt Date: 20051017
  Transmission Date: 20060701
  Serious: Yes (Death, Hospitalization, Other)
  Sender: FDA-Public Use
  Company Number: US-MERCK-0510USA07772

PATIENT
  Age: 23 Year
  Sex: Female
  Weight: 55 kg

DRUGS (10)
  1. HYDROXYCHLOROQUINE SULFATE [Concomitant]
     Indication: PAIN
     Route: 065
     Dates: start: 20000301, end: 20020801
  2. PREDNISONE [Concomitant]
     Route: 065
  3. AZATHIOPRINE [Concomitant]
     Route: 065
  4. ALTACE [Concomitant]
     Indication: HYPERTENSION
     Route: 065
     Dates: start: 20020401, end: 20020601
  5. NAPROXEN [Concomitant]
     Indication: PAIN
     Route: 065
     Dates: start: 20000501, end: 20000601
  6. TYLENOL [Concomitant]
     Indication: PAIN
     Route: 065
     Dates: start: 20020401, end: 20020501
  7. MEDROXYPROGESTERONE ACETATE [Concomitant]
     Route: 065
     Dates: start: 19970901, end: 20021001
  8. PREMARIN [Concomitant]
     Route: 065
     Dates: start: 19970901, end: 20021001
  9. ASPIRIN [Concomitant]
     Route: 065
  10. VIOXX [Suspect]
     Indication: SYSTEMIC LUPUS ERYTHEMATOSUS
     Route: 048
     Dates: start: 20000501, end: 20020101

REACTIONS (26)
  - ACUTE RESPIRATORY DISTRESS SYNDROME [None]
  - ACUTE RESPIRATORY FAILURE [None]
  - ANAEMIA [None]
  - ARTERITIS [None]
  - AZOTAEMIA [None]
  - BLOOD CHOLESTEROL INCREASED [None]
  - CARDIAC ARREST [None]
  - CHEST PAIN [None]
  - COAGULOPATHY [None]
  - COGNITIVE DISORDER [None]
  - DYSPNOEA [None]
  - GASTROINTESTINAL HAEMORRHAGE [None]
  - HAEMOPTYSIS [None]
  - LUNG INFILTRATION [None]
  - MITRAL VALVE DISEASE [None]
  - MYOCARDIAL INFARCTION [None]
  - PNEUMONIA [None]
  - PNEUMONITIS [None]
  - PROTEINURIA [None]
  - PULMONARY OEDEMA [None]
  - RENAL DISORDER [None]
  - SHOCK [None]
  - SINUS TACHYCARDIA [None]
  - SUBACUTE ENDOCARDITIS [None]
  - SYSTEMIC LUPUS ERYTHEMATOSUS [None]
  - THROMBOCYTOPENIA [None]
